FAERS Safety Report 5784268-5 (Version None)
Quarter: 2008Q2

REPORT INFORMATION
  Report Type: 
  Country: None (occurrence: None)
  Receive Date: 20080624
  Receipt Date: 20070514
  Transmission Date: 20081010
  Serious: No
  Sender: FDA-Public Use
  Company Number: US-ASTRAZENECA-2007UW11407

PATIENT
  Age: 68 Year
  Sex: Male
  Weight: 71.2 kg

DRUGS (7)
  1. PULMICORT RESPULES [Suspect]
     Indication: EMPHYSEMA
     Route: 055
  2. ASPIRIN [Concomitant]
  3. KLONOPIN [Concomitant]
  4. INHALER [Concomitant]
  5. VITAMINS [Concomitant]
  6. DOXEPIN HCL [Concomitant]
  7. NEXIUM [Concomitant]
     Route: 048

REACTIONS (4)
  - ASTHENIA [None]
  - INFLUENZA LIKE ILLNESS [None]
  - MEDICATION ERROR [None]
  - PHARMACEUTICAL PRODUCT COMPLAINT [None]
